FAERS Safety Report 4323123-4 (Version None)
Quarter: 2004Q1

REPORT INFORMATION
  Report Type: 
  Country: None (occurrence: None)
  Receive Date: 20040322
  Receipt Date: 20040227
  Transmission Date: 20041129
  Serious: Yes (Other)
  Sender: FDA-Public Use
  Company Number: 200410804GDS

PATIENT
  Age: 71 Year
  Sex: Male

DRUGS (1)
  1. PHENYLEPHRINE [Suspect]
     Indication: NASAL CONGESTION

REACTIONS (4)
  - FLUSHING [None]
  - NASAL CONGESTION [None]
  - RHINITIS ATROPHIC [None]
  - SKIN TEST POSITIVE [None]
